FAERS Safety Report 6104951-1 (Version None)
Quarter: 2009Q1

REPORT INFORMATION
  Report Type: 
  Country: None (occurrence: None)
  Receive Date: 20090304
  Receipt Date: 20090226
  Transmission Date: 20090719
  Serious: No
  Sender: FDA-Public Use
  Company Number: 118992

PATIENT
  Age: 44 Year
  Sex: Male
  Weight: 90.7194 kg

DRUGS (1)
  1. TRIPLE ANTIBIOTIC OINTMENT WITH PRAMOXINE HCL /PERRIGO COMPANY [Suspect]
     Dosage: /ONCE/ TOPICAL
     Route: 061
     Dates: start: 20090225, end: 20090225

REACTIONS (1)
  - DRUG HYPERSENSITIVITY [None]
